FAERS Safety Report 21768750 (Version 1)
Quarter: 2022Q4

REPORT INFORMATION
  Report Type: Spontaneous
  Country: US (occurrence: None)
  Receive Date: 20221222
  Receipt Date: 20221222
  Transmission Date: 20230113
  Serious: Yes (Hospitalization)
  Sender: FDA-Public Use
  Company Number: None

PATIENT
  Age: 61 Year
  Sex: Female

DRUGS (1)
  1. GLATIRAMER ACETATE [Suspect]
     Active Substance: GLATIRAMER ACETATE
     Indication: Multiple sclerosis
     Dosage: 40MG THREE TIMES WEEKLY SQ
     Route: 058
     Dates: start: 20180815

REACTIONS (4)
  - Nasopharyngitis [None]
  - Urinary tract infection [None]
  - Multiple sclerosis [None]
  - Visual impairment [None]

NARRATIVE: CASE EVENT DATE: 20221214
